FAERS Safety Report 7661777-5 (Version None)
Quarter: 2011Q3

REPORT INFORMATION
  Report Type: 
  Country: None (occurrence: None)
  Receive Date: 20110805
  Receipt Date: 20101026
  Transmission Date: 20111222
  Serious: No
  Sender: FDA-Public Use
  Company Number: US-ABBOTT-10P-163-0681745-00

PATIENT
  Sex: Male
  Weight: 95.34 kg

DRUGS (3)
  1. SAW PALMETTO [Concomitant]
     Indication: URINARY TRACT DISORDER
  2. NIASPAN [Suspect]
     Indication: BLOOD CHOLESTEROL INCREASED
     Dosage: 500 MG DAILY AT BEDTIME
     Route: 048
     Dates: start: 20100901
  3. NIASPAN [Suspect]
     Indication: HIGH DENSITY LIPOPROTEIN DECREASED

REACTIONS (1)
  - PROSTATIC SPECIFIC ANTIGEN INCREASED [None]
